FAERS Safety Report 5227213-3 (Version None)
Quarter: 2007Q1

REPORT INFORMATION
  Report Type: 
  Country: None (occurrence: None)
  Receive Date: 20070202
  Receipt Date: 20070124
  Transmission Date: 20070707
  Serious: Yes (Hospitalization, Disabling, Other)
  Sender: FDA-Public Use
  Company Number: BE-GLAXOSMITHKLINE-B0454029A

PATIENT
  Age: 58 Year
  Sex: Male
  Weight: 81 kg

DRUGS (8)
  1. DUTASTERIDE [Suspect]
     Indication: BENIGN PROSTATIC HYPERPLASIA
     Dosage: .5MG PER DAY
     Route: 048
     Dates: start: 20040717
  2. TAMSULOSIN HCL [Suspect]
     Indication: BENIGN PROSTATIC HYPERPLASIA
     Dosage: .4MG PER DAY
     Route: 048
     Dates: start: 20040717
  3. INDERAL RETARD MITIS [Concomitant]
     Indication: HYPERTENSION
     Dosage: 80MG PER DAY
     Route: 048
     Dates: start: 19980101
  4. DEANXIT [Concomitant]
     Indication: DEPRESSION
     Dosage: 10MG THREE TIMES PER DAY
     Route: 048
     Dates: start: 20030101
  5. CIPRAMIL [Concomitant]
     Indication: DEPRESSION
     Dosage: 20MG PER DAY
     Route: 048
     Dates: start: 20030101
  6. REDOMEX [Concomitant]
     Indication: DEPRESSION
     Dosage: 50MG PER DAY
     Route: 048
     Dates: start: 20030101
  7. EFFEXOR XR [Concomitant]
     Indication: DEPRESSION
     Dosage: 75MG PER DAY
     Route: 048
     Dates: start: 20030101
  8. BETASERC [Concomitant]
     Indication: DIZZINESS
     Dosage: 8MG PER DAY
     Route: 048
     Dates: start: 20030101

REACTIONS (4)
  - ABDOMINAL PAIN [None]
  - CALCULUS URETERIC [None]
  - RENAL CELL CARCINOMA STAGE UNSPECIFIED [None]
  - RENAL MASS [None]
